FAERS Safety Report 6167279-X (Version None)
Quarter: 2009Q2

REPORT INFORMATION
  Report Type: 
  Country: None (occurrence: None)
  Receive Date: 20090424
  Receipt Date: 20090420
  Transmission Date: 20091009
  Serious: Yes (Hospitalization)
  Sender: FDA-Public Use
  Company Number: FR-TEVA-192508ISR

PATIENT

DRUGS (4)
  1. FLUOROURACIL [Suspect]
     Indication: COLORECTAL CANCER
  2. IRINOTECAN HCL [Suspect]
     Indication: COLORECTAL CANCER
  3. FOLINIC ACID [Suspect]
     Indication: COLORECTAL CANCER
  4. BEVACIZUMAB [Suspect]
     Indication: COLORECTAL CANCER

REACTIONS (1)
  - PULMONARY EMBOLISM [None]
